FAERS Safety Report 13334254 (Version 3)
Quarter: 2017Q2

REPORT INFORMATION
  Report Type: Spontaneous
  Country: US (occurrence: US)
  Receive Date: 20170314
  Receipt Date: 20170616
  Transmission Date: 20170830
  Serious: Yes (Hospitalization, Other)
  Sender: FDA-Public Use
  Company Number: US-PFIZER INC-2017103454

PATIENT
  Age: 80 Year
  Sex: Female
  Weight: 54 kg

DRUGS (12)
  1. VITAMIN D3 [Concomitant]
     Active Substance: CHOLECALCIFEROL
     Indication: VITAMIN D DECREASED
     Dosage: 2000 IU, UNK, TAKE ALMOST EVERY DAY
     Dates: start: 2012
  2. VITAMIN B12 [Concomitant]
     Active Substance: CYANOCOBALAMIN
     Indication: ANAEMIA
     Dosage: 2500 UG, UNK, QUICK DISSOLVE ONCE IN A WHILE
     Dates: start: 2014
  3. ASPIRIN. [Concomitant]
     Active Substance: ASPIRIN
     Indication: CARDIAC DISORDER
  4. IBRANCE [Suspect]
     Active Substance: PALBOCICLIB
     Indication: BREAST CANCER METASTATIC
     Dosage: 125 MG, CYCLIC ( DAILY FOR 21 DAYS-OFF 7DAY) WITH FOOD
     Route: 048
     Dates: start: 20160309
  5. AMLODIPINE BESYLATE. [Concomitant]
     Active Substance: AMLODIPINE BESYLATE
     Indication: BLOOD PRESSURE ABNORMAL
     Dosage: 2.5 MG, ONCE A DAY
     Route: 048
     Dates: start: 201611
  6. ANASTROZOLE. [Concomitant]
     Active Substance: ANASTROZOLE
     Indication: BREAST CANCER
     Dosage: 1 MG, ONCE A DAY
     Route: 048
     Dates: start: 201603
  7. ASPIRIN. [Concomitant]
     Active Substance: ASPIRIN
     Indication: BLOOD PRESSURE ABNORMAL
     Dosage: 81 MG, EVEY OTHER NIGHT
     Dates: start: 2001
  8. TOPROL XL [Concomitant]
     Active Substance: METOPROLOL SUCCINATE
     Indication: BLOOD PRESSURE ABNORMAL
     Dosage: 75 MG,ONCE A DAY, NIGHTLY
     Dates: start: 2001
  9. TOPROL XL [Concomitant]
     Active Substance: METOPROLOL SUCCINATE
     Indication: CARDIAC DISORDER
  10. TOPROL XL [Concomitant]
     Active Substance: METOPROLOL SUCCINATE
     Indication: ATRIAL TACHYCARDIA
  11. VITAMIN C [Concomitant]
     Active Substance: ASCORBIC ACID
     Indication: SUPPLEMENTATION THERAPY
     Dosage: 500 MG,ONCE A DAY
     Dates: start: 20160803
  12. IRON SUPPLEMENT [Concomitant]
     Active Substance: IRON
     Dosage: 65 MG, THREE TIMES A DAY
     Dates: start: 20160803

REACTIONS (13)
  - Hair texture abnormal [Recovering/Resolving]
  - Lacrimation increased [Unknown]
  - White blood cell count decreased [Unknown]
  - Fatigue [Not Recovered/Not Resolved]
  - Anaemia [Unknown]
  - Red blood cell count decreased [Unknown]
  - Macule [Unknown]
  - Haematocrit decreased [Not Recovered/Not Resolved]
  - Neuropathy peripheral [Unknown]
  - Product use in unapproved indication [Recovered/Resolved]
  - Skin fissures [Unknown]
  - Epistaxis [Recovered/Resolved]
  - Nail disorder [Unknown]

NARRATIVE: CASE EVENT DATE: 201603
